FAERS Safety Report 25160212 (Version 2)
Quarter: 2025Q2

REPORT INFORMATION
  Report Type: Report from Study
  Country: ES (occurrence: ES)
  Receive Date: 20250404
  Receipt Date: 20250429
  Transmission Date: 20250717
  Serious: Yes (Other)
  Sender: TEVA
  Company Number: ES-TEVA-VS-3316248

PATIENT
  Age: 66 Year
  Sex: Female

DRUGS (8)
  1. TERIPARATIDE [Suspect]
     Active Substance: TERIPARATIDE
     Indication: Osteoporosis
     Route: 065
     Dates: start: 20241227
  2. SIMVASTATIN [Concomitant]
     Active Substance: SIMVASTATIN
     Indication: Hypercholesterolaemia
     Dosage: 20MG:  DOSE: ONE AT NIGHT ; START DATE: SOME TIME AGO; END DATE: CONTINUES.
     Route: 065
  3. Dormicum [Concomitant]
     Indication: Insomnia
     Dosage: DOSE: ONE AT NIGHT ; START DATE: SOME TIME AGO; END DATE: CONTINUES.
     Route: 065
  4. Noctamid [Concomitant]
     Indication: Insomnia
     Dosage: DOSE: ONE AT NIGHT ; START DATE: SOME TIME AGO; END DATE: CONTINUES
     Route: 065
  5. VOLTAREN [Concomitant]
     Active Substance: DICLOFENAC SODIUM
     Indication: Pain
     Dosage: DOSE: WHEN IT^S NEEDED ; START DATE: SOME TIME AGO; END DATE: CONTINUES
     Route: 030
     Dates: start: 20250410
  6. CALCIFEDIOL [Concomitant]
     Active Substance: CALCIFEDIOL
     Indication: Vitamin D deficiency
     Dosage: DOSE: ONE EVERY MONTH ; START DATE: SOME TIME AGO; END DATE: CONTINUES.
     Route: 065
  7. Neurotin 300 [Concomitant]
     Indication: Pain
     Route: 065
     Dates: start: 20250322
  8. FENTANYL [Concomitant]
     Active Substance: FENTANYL
     Indication: Pain
     Route: 065
     Dates: start: 20250322

REACTIONS (6)
  - Haematuria [Not Recovered/Not Resolved]
  - Constipation [Not Recovered/Not Resolved]
  - Back pain [Not Recovered/Not Resolved]
  - Gingival pain [Not Recovered/Not Resolved]
  - Urine odour abnormal [Not Recovered/Not Resolved]
  - Arthralgia [Not Recovered/Not Resolved]

NARRATIVE: CASE EVENT DATE: 20250101
